FAERS Safety Report 24267275 (Version 1)
Quarter: 2024Q3

REPORT INFORMATION
  Report Type: Spontaneous
  Country: ES (occurrence: ES)
  Receive Date: 20240830
  Receipt Date: 20240830
  Transmission Date: 20241016
  Serious: Yes (Hospitalization)
  Sender: RANBAXY
  Company Number: ES-AEMPS-1536019

PATIENT
  Age: 76 Year
  Sex: Female
  Weight: 44.2 kg

DRUGS (2)
  1. SERTRALINE [Interacting]
     Active Substance: SERTRALINE HYDROCHLORIDE
     Indication: Depression
     Dosage: 1 TABLET EVERY 12 HOURS.
     Route: 048
     Dates: start: 20231003, end: 20240522
  2. ENALAPRIL\HYDROCHLOROTHIAZIDE [Interacting]
     Active Substance: ENALAPRIL\HYDROCHLOROTHIAZIDE
     Indication: Hypertension
     Dosage: 1 TABLET EVERY 12 HOURS.
     Route: 048
     Dates: start: 20220817, end: 20240522

REACTIONS (2)
  - Condition aggravated [Recovered/Resolved]
  - Hyponatraemia [Recovered/Resolved]

NARRATIVE: CASE EVENT DATE: 20240519
